FAERS Safety Report 9954011 (Version 1)
Quarter: 2014Q1

REPORT INFORMATION
  Report Type: Spontaneous
  Country: US (occurrence: US)
  Receive Date: 20140304
  Receipt Date: 20140304
  Transmission Date: 20141002
  Serious: Yes (Hospitalization, Other)
  Sender: FDA-Public Use
  Company Number: US-TARO-2013P1020291

PATIENT
  Age: 72 Year
  Sex: Male
  Weight: 91.63 kg

DRUGS (8)
  1. LAMOTRIGINE TABLETS 200 MG [Suspect]
     Indication: EPILEPSY
     Route: 048
     Dates: start: 201209
  2. LAMOTRIGINE TABLETS 200 MG [Suspect]
     Indication: EPILEPSY
     Route: 048
     Dates: start: 201209
  3. KEPPRA [Concomitant]
  4. TOPIRAMATE [Concomitant]
  5. PLAVIX [Concomitant]
  6. FINASTERIDE [Concomitant]
  7. BABY ASPIRIN [Concomitant]
  8. VITAMIN D [Concomitant]

REACTIONS (2)
  - Drug ineffective [Not Recovered/Not Resolved]
  - Convulsion [Recovered/Resolved]
